FAERS Safety Report 7760614-8 (Version None)
Quarter: 2011Q3

REPORT INFORMATION
  Report Type: 
  Country: None (occurrence: None)
  Receive Date: 20110919
  Receipt Date: 20110912
  Transmission Date: 20111222
  Serious: Yes (Other)
  Sender: FDA-Public Use
  Company Number: US-B.I. PHARMACEUTICALS,INC./RIDGEFIELD-2011-BP-22005BP

PATIENT
  Sex: Male

DRUGS (4)
  1. PRADAXA [Suspect]
     Indication: ATRIAL FIBRILLATION
     Dosage: 300 MG
     Route: 048
  2. NEXIUM [Concomitant]
     Dosage: 40 MG
     Route: 048
  3. CYMBALTA [Concomitant]
     Indication: HYPOAESTHESIA
     Route: 048
  4. BENICAR [Concomitant]
     Route: 048

REACTIONS (2)
  - THROMBOTIC STROKE [None]
  - GAIT DISTURBANCE [None]
